FAERS Safety Report 5990517-0 (Version None)
Quarter: 2008Q4

REPORT INFORMATION
  Report Type: 
  Country: None (occurrence: None)
  Receive Date: 20081211
  Receipt Date: 20081126
  Transmission Date: 20090506
  Serious: Yes (Life-Threatening)
  Sender: FDA-Public Use
  Company Number: JP-GENENTECH-259398

PATIENT
  Sex: Male
  Weight: 69 kg

DRUGS (13)
  1. AVASTIN [Suspect]
     Indication: COLON CANCER
     Dosage: 5 MG/KG, Q2W
     Route: 041
     Dates: start: 20071129, end: 20080328
  2. OXALIPLATIN [Concomitant]
     Indication: COLON CANCER
     Dosage: UNK, UNK
     Route: 041
     Dates: start: 20070918, end: 20080328
  3. FLUOROURACIL [Concomitant]
     Indication: COLON CANCER
     Dosage: UNK, UNK
     Route: 042
     Dates: start: 20070918, end: 20080301
  4. ISOVORIN [Concomitant]
     Indication: COLON CANCER
     Dosage: UNK, UNK
     Route: 041
     Dates: start: 20070918, end: 20080328
  5. FOIPAN [Concomitant]
     Indication: DRUG USE FOR UNKNOWN INDICATION
     Dates: start: 20000701
  6. RENIVACE [Concomitant]
     Indication: DRUG USE FOR UNKNOWN INDICATION
     Dates: start: 20000601
  7. DOXAZOSIN MESYLATE [Concomitant]
     Indication: DRUG USE FOR UNKNOWN INDICATION
     Dates: start: 20000701
  8. NORVASC [Concomitant]
     Indication: DRUG USE FOR UNKNOWN INDICATION
     Dates: start: 20010305
  9. THIATON [Concomitant]
     Indication: DRUG USE FOR UNKNOWN INDICATION
     Dates: start: 20051101
  10. LASIX [Concomitant]
     Indication: DRUG USE FOR UNKNOWN INDICATION
     Dates: start: 20060523
  11. KYTRIL [Concomitant]
     Indication: DRUG USE FOR UNKNOWN INDICATION
     Dates: start: 20070412, end: 20080328
  12. DECADRON [Concomitant]
     Indication: DRUG USE FOR UNKNOWN INDICATION
     Dates: start: 20070412, end: 20080328
  13. LAC-B [Concomitant]
     Indication: DRUG USE FOR UNKNOWN INDICATION
     Dates: start: 20071002

REACTIONS (1)
  - INTERSTITIAL LUNG DISEASE [None]
